FAERS Safety Report 16106843 (Version 2)
Quarter: 2022Q1

REPORT INFORMATION
  Report Type: Spontaneous
  Country: NZ (occurrence: NZ)
  Receive Date: 20190322
  Receipt Date: 20220302
  Transmission Date: 20220423
  Serious: Yes (Hospitalization, Other)
  Sender: FDA-Public Use
  Company Number: NZ-TASMAN PHARMA, INC.-2019TSM00016

PATIENT
  Age: 69 Year
  Sex: Female

DRUGS (3)
  1. CLOZAPINE [Suspect]
     Active Substance: CLOZAPINE
     Dosage: UNK
     Dates: start: 20070120
  2. CLOZAPINE [Suspect]
     Active Substance: CLOZAPINE
     Dosage: 125 MG, 1X/DAY
     Route: 048
     Dates: start: 20190906
  3. CLOZAPINE [Suspect]
     Active Substance: CLOZAPINE
     Dosage: 212.5 MG, 1X/DAY
     Dates: start: 20220210

REACTIONS (3)
  - Neutrophil count decreased [Unknown]
  - White blood cell count decreased [Unknown]
  - Neutropenia [Unknown]
